FAERS Safety Report 4326481-X (Version None)
Quarter: 2004Q1

REPORT INFORMATION
  Report Type: 
  Country: None (occurrence: None)
  Receive Date: 20040324
  Receipt Date: 20040311
  Transmission Date: 20041129
  Serious: Yes (Hospitalization)
  Sender: FDA-Public Use
  Company Number: 04P-056-0253218-00

PATIENT
  Age: 10 Year
  Sex: Female

DRUGS (3)
  1. DEPAKENE [Suspect]
     Indication: EPILEPSY
     Dosage: PER ORAL
     Route: 048
  2. TOPIRMATE [Suspect]
     Indication: EPILEPSY
     Dosage: PER ORAL
     Route: 048
     Dates: start: 19990915, end: 20000315
  3. TOPIRMATE [Suspect]
     Indication: EPILEPSY
     Dosage: PER ORAL
     Route: 048
     Dates: start: 20031001

REACTIONS (5)
  - ARTHRALGIA [None]
  - GASTROINTESTINAL DISORDER [None]
  - JOINT SWELLING [None]
  - LEUKOCYTOCLASTIC VASCULITIS [None]
  - VASCULAR PURPURA [None]
